FAERS Safety Report 21657111 (Version 1)
Quarter: 2022Q4

REPORT INFORMATION
  Report Type: Spontaneous
  Country: US (occurrence: US)
  Receive Date: 20221129
  Receipt Date: 20221129
  Transmission Date: 20230112
  Serious: Yes (Life-Threatening, Hospitalization)
  Sender: FDA-Public Use
  Company Number: US-MYLANLABS-2022M1132935

PATIENT
  Age: 4 Decade
  Sex: Female
  Weight: 43.5 kg

DRUGS (23)
  1. INSULIN GLARGINE [Suspect]
     Active Substance: INSULIN GLARGINE
     Indication: Diabetic ketoacidosis
     Dosage: A NURSE-DRIVEN TITRATABLE INSULIN INFUSION (INFUSION)
     Route: 042
  2. INSULIN GLARGINE [Suspect]
     Active Substance: INSULIN GLARGINE
     Indication: Type 2 diabetes mellitus
  3. SODIUM CHLORIDE [Suspect]
     Active Substance: SODIUM CHLORIDE
     Indication: Diabetic ketoacidosis
     Dosage: 4 LITER
     Route: 065
  4. DEXAMETHASONE [Suspect]
     Active Substance: DEXAMETHASONE
     Indication: COVID-19 pneumonia
     Dosage: UNK
     Route: 065
  5. DESMOPRESSIN [Suspect]
     Active Substance: DESMOPRESSIN
     Indication: Diabetes insipidus
     Dosage: 2 MICROGRAM (FOUR DOSES OF 2MCG OVER 12 HOURS_
     Route: 065
  6. HEPARIN [Suspect]
     Active Substance: HEPARIN SODIUM
     Indication: Cerebral venous sinus thrombosis
     Dosage: UNK
     Route: 065
  7. VANCOMYCIN [Suspect]
     Active Substance: VANCOMYCIN
     Indication: Klebsiella infection
     Dosage: UNK
     Route: 042
  8. SODIUM BICARBONATE [Suspect]
     Active Substance: SODIUM BICARBONATE
     Indication: Diabetic ketoacidosis
     Dosage: UNK
     Route: 065
  9. REMDESIVIR [Suspect]
     Active Substance: REMDESIVIR
     Indication: COVID-19 pneumonia
     Dosage: UNK
     Route: 065
  10. TOCILIZUMAB [Suspect]
     Active Substance: TOCILIZUMAB
     Indication: COVID-19 pneumonia
     Dosage: UNK
     Route: 065
  11. DEXTROSE [Suspect]
     Active Substance: DEXTROSE
     Indication: Diabetes insipidus
     Dosage: 50 MILLILITER, QH (INFUSION)
     Route: 042
  12. DEXTROSE [Suspect]
     Active Substance: DEXTROSE
     Dosage: 125 MILLILITER, QH (RATE INCREASED BASED ON SODIUM LEVELS AND INCREASED URINE OUTPUT)/ INFUSION
     Route: 042
  13. LORAZEPAM [Suspect]
     Active Substance: LORAZEPAM
     Indication: Agitation
     Dosage: 1 MILLIGRAM
     Route: 042
  14. MANNITOL [Suspect]
     Active Substance: MANNITOL
     Indication: Brain oedema
     Dosage: UNK
     Route: 065
  15. PIPERACILLIN AND TAZOBACTAM [Suspect]
     Active Substance: PIPERACILLIN SODIUM\TAZOBACTAM SODIUM
     Indication: Klebsiella infection
     Dosage: UNK
     Route: 042
  16. CEFEPIME [Suspect]
     Active Substance: CEFEPIME HYDROCHLORIDE
     Indication: Klebsiella infection
     Dosage: UNK
     Route: 042
  17. KETAMINE [Concomitant]
     Active Substance: KETAMINE
     Indication: Sedative therapy
     Dosage: UNK
     Route: 065
  18. FENTANYL [Concomitant]
     Active Substance: FENTANYL
     Indication: Sedative therapy
     Dosage: UNK
     Route: 065
  19. PROPOFOL [Concomitant]
     Active Substance: PROPOFOL
     Indication: Sedative therapy
     Dosage: UNK
     Route: 065
  20. ENOXAPARIN [Concomitant]
     Active Substance: ENOXAPARIN
     Indication: Thrombosis prophylaxis
     Dosage: 30 MILLIGRAM
     Route: 058
  21. LABETALOL [Concomitant]
     Active Substance: LABETALOL\LABETALOL HYDROCHLORIDE
     Indication: Hypertension
     Dosage: 10 MILLIGRAM
     Route: 042
  22. NOREPINEPHRINE [Concomitant]
     Active Substance: NOREPINEPHRINE
     Indication: Hypotension
     Dosage: UNK
     Route: 065
  23. WATER [Concomitant]
     Active Substance: WATER
     Indication: Vehicle solution use
     Dosage: UNK (INFUSION)
     Route: 042

REACTIONS (3)
  - Off label use [Unknown]
  - Drug ineffective for unapproved indication [Unknown]
  - Drug ineffective [Unknown]
